FAERS Safety Report 5380076-8 (Version None)
Quarter: 2007Q3

REPORT INFORMATION
  Report Type: 
  Country: None (occurrence: None)
  Receive Date: 20070706
  Receipt Date: 20070418
  Transmission Date: 20080115
  Serious: No
  Sender: FDA-Public Use
  Company Number: A0647808A

PATIENT
  Sex: Female

DRUGS (1)
  1. TYKERB [Suspect]

REACTIONS (1)
  - DIARRHOEA [None]
